FAERS Safety Report 10969339 (Version 1)
Quarter: 2015Q1

REPORT INFORMATION
  Report Type: Spontaneous
  Country: CA (occurrence: None)
  Receive Date: 20150330
  Receipt Date: 20150330
  Transmission Date: 20150721
  Serious: Yes (Death, Hospitalization)
  Sender: FDA-Public Use
  Company Number: None

PATIENT
  Age: 55 Year
  Sex: Male
  Weight: 63.7 kg

DRUGS (5)
  1. NEXAVAR [Suspect]
     Active Substance: SORAFENIB
     Dosage: RANDOMIZED TO 400 MG BID
     Dates: end: 20150316
  2. SENOKOT [Concomitant]
     Active Substance: SENNOSIDES
  3. HYDROMORPHONE CONTIN [Concomitant]
  4. HYDROMORPHONE [Concomitant]
     Active Substance: HYDROMORPHONE
  5. COLACE [Concomitant]
     Active Substance: DOCUSATE SODIUM

REACTIONS (6)
  - Hyponatraemia [None]
  - Condition aggravated [None]
  - Hepatocellular carcinoma [None]
  - Tumour rupture [None]
  - Malignant neoplasm progression [None]
  - Hepatic failure [None]

NARRATIVE: CASE EVENT DATE: 20150320
